FAERS Safety Report 7910232-3 (Version None)
Quarter: 2011Q4

REPORT INFORMATION
  Report Type: 
  Country: None (occurrence: None)
  Receive Date: 20111111
  Receipt Date: 20111102
  Transmission Date: 20120403
  Serious: Yes (Other)
  Sender: FDA-Public Use
  Company Number: US-JNJFOC-20111101720

PATIENT
  Sex: Female
  Weight: 65.32 kg

DRUGS (2)
  1. TOPAMAX [Suspect]
     Indication: CONVULSION
     Route: 048
     Dates: start: 20050101
  2. TOPAMAX [Suspect]
     Route: 048

REACTIONS (9)
  - DECREASED APPETITE [None]
  - PRODUCT QUALITY ISSUE [None]
  - CORONARY ARTERY OCCLUSION [None]
  - HYPERTENSION [None]
  - WEIGHT DECREASED [None]
  - RASH [None]
  - INFECTION [None]
  - WHITE BLOOD CELL COUNT INCREASED [None]
  - STRESS [None]
